FAERS Safety Report 9640480 (Version 1)
Quarter: 2013Q4

REPORT INFORMATION
  Report Type: Report from Study
  Country: US (occurrence: US)
  Receive Date: 20131023
  Receipt Date: 20131023
  Transmission Date: 20140711
  Serious: No
  Sender: FDA-Public Use
  Company Number: US-ABBVIE-13P-163-1089724-00

PATIENT
  Age: 22 Year
  Sex: Female
  Weight: 58.11 kg

DRUGS (3)
  1. LUPRON DEPOT [Suspect]
     Indication: ENDOMETRIOSIS
     Dosage: 3RD INJECTION
     Route: 030
     Dates: start: 201303
  2. IRON [Concomitant]
     Indication: ANAEMIA
  3. METOCLOPRAMIDE [Concomitant]
     Indication: NAUSEA

REACTIONS (9)
  - Feeling cold [Not Recovered/Not Resolved]
  - Hot flush [Not Recovered/Not Resolved]
  - Local swelling [Not Recovered/Not Resolved]
  - Fall [Recovered/Resolved]
  - Muscle injury [Not Recovered/Not Resolved]
  - Contusion [Not Recovered/Not Resolved]
  - Limb injury [Not Recovered/Not Resolved]
  - Pain in extremity [Not Recovered/Not Resolved]
  - Limb discomfort [Not Recovered/Not Resolved]
